FAERS Safety Report 6865946-3 (Version None)
Quarter: 2010Q3

REPORT INFORMATION
  Report Type: 
  Country: None (occurrence: None)
  Receive Date: 20100719
  Receipt Date: 20100706
  Transmission Date: 20110219
  Serious: Yes (Hospitalization)
  Sender: FDA-Public Use
  Company Number: CIP10001490

PATIENT
  Age: 66 Year
  Sex: Male

DRUGS (5)
  1. RISEDRONATE SODIUM [Suspect]
     Indication: OSTEOPOROSIS
     Dosage: 17.5 MG ONCE WEEKLY, ORAL
     Route: 048
     Dates: start: 20100510, end: 20100521
  2. ENBREL [Suspect]
     Indication: RHEUMATOID ARTHRITIS
     Dosage: 50 MG DAILY, SUBCUTANEOUS
     Route: 058
     Dates: start: 20100412, end: 20100514
  3. ISCOTIN /00030201/ (ISONIAZID) [Suspect]
     Indication: ANTIBIOTIC PROPHYLAXIS
     Dosage: 300 MG DAILY
     Dates: start: 20100319, end: 20100521
  4. PREDNISOLONE [Concomitant]
  5. SPIRIVA [Concomitant]

REACTIONS (10)
  - ALANINE AMINOTRANSFERASE INCREASED [None]
  - ASPARTATE AMINOTRANSFERASE INCREASED [None]
  - BLOOD ALKALINE PHOSPHATASE INCREASED [None]
  - BLOOD LACTATE DEHYDROGENASE INCREASED [None]
  - C-REACTIVE PROTEIN INCREASED [None]
  - GAMMA-GLUTAMYLTRANSFERASE INCREASED [None]
  - JAUNDICE [None]
  - LIVER DISORDER [None]
  - LYMPHOCYTE STIMULATION TEST POSITIVE [None]
  - MALAISE [None]
